FAERS Safety Report 6015505-X (Version None)
Quarter: 2008Q4

REPORT INFORMATION
  Report Type: 
  Country: None (occurrence: None)
  Receive Date: 20081216
  Receipt Date: 20080917
  Transmission Date: 20090506
  Serious: No
  Sender: FDA-Public Use
  Company Number: US-WYE-H06061408

PATIENT
  Sex: Male

DRUGS (1)
  1. EFFEXOR XR [Suspect]
     Indication: ANXIETY
     Dosage: 150 MG 1X PER 1 TOT, ORAL
     Route: 048
     Dates: start: 20080911, end: 20080911

REACTIONS (3)
  - CONDITION AGGRAVATED [None]
  - EXTRASYSTOLES [None]
  - PALPITATIONS [None]
